FAERS Safety Report 5835098-7 (Version None)
Quarter: 2008Q3

REPORT INFORMATION
  Report Type: 
  Country: None (occurrence: None)
  Receive Date: 20080806
  Receipt Date: 20080728
  Transmission Date: 20090109
  Serious: Yes (Hospitalization)
  Sender: FDA-Public Use
  Company Number: AU-PURDUE-USA_2008_0034102

PATIENT
  Age: 41 Year
  Sex: Female

DRUGS (1)
  1. MS CONTIN [Suspect]
     Indication: BACK PAIN
     Route: 042

REACTIONS (3)
  - CHEST PAIN [None]
  - ELECTROCARDIOGRAM CHANGE [None]
  - INTENTIONAL DRUG MISUSE [None]
